FAERS Safety Report 10915589 (Version 2)
Quarter: 2015Q3

REPORT INFORMATION
  Report Type: Spontaneous
  Country: US (occurrence: US)
  Receive Date: 20150316
  Receipt Date: 20150918
  Transmission Date: 20151125
  Serious: Yes (Hospitalization)
  Sender: FDA-Public Use
  Company Number: US-PFIZER INC-2015092572

PATIENT
  Age: 65 Year
  Sex: Female

DRUGS (6)
  1. IMITREX [Concomitant]
     Active Substance: SUMATRIPTAN\SUMATRIPTAN SUCCINATE
     Dosage: 6 MG, AS NEEDED
     Dates: start: 1996
  2. ZOLPIRAM [Concomitant]
     Dosage: 10 MG, 1X/DAY
     Dates: start: 1992
  3. MS CONTIN [Concomitant]
     Active Substance: MORPHINE SULFATE
     Dosage: 30 MG, 3X/DAY
     Dates: start: 1992
  4. REMERON [Concomitant]
     Active Substance: MIRTAZAPINE
     Dosage: 30 MG, 1X/DAY (NIGHTLY)
     Dates: start: 1996
  5. KLONOPIN [Concomitant]
     Active Substance: CLONAZEPAM
     Dosage: 0.05 MG, 2X/DAY (NIGHTLY)
     Dates: start: 1992
  6. VENLAFAXINE HCL [Suspect]
     Active Substance: VENLAFAXINE HYDROCHLORIDE
     Dosage: 300 MG, 1X/DAY
     Dates: start: 1992

REACTIONS (6)
  - Fatigue [Unknown]
  - Pain [Unknown]
  - Condition aggravated [Unknown]
  - Drug intolerance [Not Recovered/Not Resolved]
  - Drug ineffective [Not Recovered/Not Resolved]
  - Social avoidant behaviour [Unknown]

NARRATIVE: CASE EVENT DATE: 2015
